FAERS Safety Report 10156381 (Version 2)
Quarter: 2014Q2

REPORT INFORMATION
  Report Type: Report from Study
  Country: CA (occurrence: CA)
  Receive Date: 20140507
  Receipt Date: 20140507
  Transmission Date: 20141212
  Serious: Yes (Hospitalization)
  Sender: FDA-Public Use
  Company Number: CA-BRISTOL-MYERS SQUIBB COMPANY-20688172

PATIENT
  Age: 48 Year
  Sex: Female

DRUGS (19)
  1. ORENCIA [Suspect]
     Indication: SYSTEMIC LUPUS ERYTHEMATOSUS
     Dosage: 1 DF : 750 UNITS NOS.
     Dates: start: 20140121
  2. NAPROXEN [Concomitant]
  3. IRON [Concomitant]
  4. SULFATRIM D/S [Concomitant]
  5. COLCHICINE [Concomitant]
  6. FOLIC ACID [Concomitant]
  7. DEXLANSOPRAZOLE [Concomitant]
  8. XARELTO [Concomitant]
  9. ELAVIL [Concomitant]
  10. PREDNISONE [Concomitant]
  11. LEUCOVORIN [Concomitant]
  12. ZOPICLONE [Concomitant]
  13. SULFASALAZINE [Concomitant]
  14. PAROXETINE [Concomitant]
  15. METHOTREXATE [Concomitant]
  16. RISPERIDONE [Concomitant]
  17. HYDROXYCHLOROQUINE [Concomitant]
  18. CALCIUM SUPPLEMENT [Concomitant]
  19. ALDARA [Concomitant]

REACTIONS (2)
  - Pulmonary oedema [Unknown]
  - Off label use [Unknown]
